FAERS Safety Report 7762249-X (Version None)
Quarter: 2011Q3

REPORT INFORMATION
  Report Type: 
  Country: None (occurrence: None)
  Receive Date: 20110920
  Receipt Date: 20110628
  Transmission Date: 20111222
  Serious: Yes (Hospitalization)
  Sender: FDA-Public Use
  Company Number: FR-ROCHE-787371

PATIENT
  Age: 88 Year
  Sex: Female

DRUGS (3)
  1. VITAMIN D [Concomitant]
  2. CALCIUM CARBONATE [Concomitant]
  3. BONIVA [Suspect]
     Route: 065
     Dates: start: 20080101

REACTIONS (1)
  - FEMUR FRACTURE [None]
